FAERS Safety Report 24234925 (Version 1)
Quarter: 2024Q3

REPORT INFORMATION
  Report Type: Spontaneous
  Country: CL (occurrence: CL)
  Receive Date: 20240821
  Receipt Date: 20240821
  Transmission Date: 20241016
  Serious: No
  Sender: PFIZER
  Company Number: CL-PFIZER INC-202400240091

PATIENT

DRUGS (1)
  1. GENOTROPIN [Suspect]
     Active Substance: SOMATROPIN

REACTIONS (1)
  - Product physical issue [Unknown]

NARRATIVE: CASE EVENT DATE: 20240803
